FAERS Safety Report 9556438 (Version 3)
Quarter: 2013Q4

REPORT INFORMATION
  Report Type: Spontaneous
  Country: GB (occurrence: GB)
  Receive Date: 20130926
  Receipt Date: 20131003
  Transmission Date: 20140711
  Serious: Yes (Other)
  Sender: FDA-Public Use
  Company Number: GB-ABBVIE-13P-167-1136352-00

PATIENT
  Sex: Female

DRUGS (12)
  1. NORVIR [Suspect]
     Indication: HIV INFECTION
     Dosage: DOSAGE FORM UNSPECIFIED
  2. NORVIR [Suspect]
     Dosage: DOSAGE FORM UNSPECIFIED, FOR 2 YEARS
     Route: 065
  3. PREZISTA [Suspect]
     Indication: HIV INFECTION
     Route: 048
  4. INTELENCE [Suspect]
     Indication: PRODUCT USED FOR UNKNOWN INDICATION
     Route: 065
  5. INTELENCE [Suspect]
     Route: 065
  6. INTELENCE [Suspect]
     Route: 048
  7. APTIVUS [Suspect]
     Indication: HIV INFECTION
     Dosage: DOSAGE FORM UNSPECIFIED
     Route: 065
  8. ISENTRESS [Suspect]
     Indication: HIV INFECTION
     Dosage: DOSAGE FORM UNSPECIFIED
     Route: 065
  9. ISENTRESS [Suspect]
     Dosage: DOSAGE FORM UNSPECIFIED
     Route: 065
  10. TRUVADA [Suspect]
     Indication: HIV INFECTION
     Dosage: DOSAGE FORM UNSPECIFIED
     Route: 065
  11. ZIDOVUDINE [Concomitant]
     Indication: PRODUCT USED FOR UNKNOWN INDICATION
     Dosage: DOSAGE FORM UNSPECIFIED
     Route: 065
  12. PREDNISOLONE [Concomitant]
     Indication: PRODUCT USED FOR UNKNOWN INDICATION
     Dosage: DOSAGE FORM UNSPECIFIED
     Route: 065

REACTIONS (2)
  - Premature labour [Recovered/Resolved]
  - Gestational diabetes [Unknown]
